FAERS Safety Report 8473013 (Version 2)
Quarter: 2013Q1

REPORT INFORMATION
  Report Type: Report from Study
  Country: GB (occurrence: GB)
  Receive Date: 20120322
  Receipt Date: 20130101
  Transmission Date: 20140127
  Serious: Yes (Death, Hospitalization)
  Sender: FDA-Public Use
  Company Number: PHHO2011GB021811

PATIENT
  Age: 34 Year
  Sex: Female

DRUGS (7)
  1. DICLOFENAC [Suspect]
     Indication: PAIN
  2. VINORELBINE [Suspect]
     Indication: BREAST CANCER METASTATIC
     Dosage: UNK
     Dates: start: 20111215, end: 20111231
  3. VINORELBINE [Suspect]
     Dosage: UNK
     Dates: start: 20120105
  4. BLINDED AFINITOR [Suspect]
     Indication: BREAST CANCER METASTATIC
     Dosage: CODE NOT BROKEN
     Dates: start: 20111215
  5. BLINDED NO TREATMENT RECEIVED [Suspect]
     Indication: BREAST CANCER METASTATIC
     Dosage: CODE NOT BROKEN
     Dates: start: 20111215
  6. BLINDED PLACEBO [Suspect]
     Indication: BREAST CANCER METASTATIC
     Dosage: CODE NOT BROKEN
     Dates: start: 20111215
  7. COMPARATOR TRASTUZUMAB [Suspect]
     Indication: BREAST CANCER METASTATIC
     Dosage: UNK
     Dates: start: 20111215

REACTIONS (1)
  - Neutropenic sepsis [Fatal]
